FAERS Safety Report 15008954 (Version 1)
Quarter: 2018Q2

REPORT INFORMATION
  Report Type: Spontaneous
  Country: FR (occurrence: FR)
  Receive Date: 20180614
  Receipt Date: 20180614
  Transmission Date: 20180711
  Serious: Yes (Other)
  Sender: FDA-Public Use
  Company Number: FR-MERCK KGAA-2049368

PATIENT
  Sex: Female

DRUGS (2)
  1. NOVOTHYROX [Suspect]
     Active Substance: LEVOTHYROXINE SODIUM
     Indication: PRODUCT USED FOR UNKNOWN INDICATION
     Dates: start: 2017, end: 2017
  2. EUTHYROX [Suspect]
     Active Substance: LEVOTHYROXINE SODIUM
     Dates: start: 20171003

REACTIONS (9)
  - Spinal compression fracture [None]
  - Gait disturbance [Not Recovered/Not Resolved]
  - Balance disorder [None]
  - Fatigue [None]
  - Fall [None]
  - Dizziness [None]
  - Headache [None]
  - Tetany [None]
  - Muscle spasms [None]

NARRATIVE: CASE EVENT DATE: 2017
